APPROVED DRUG PRODUCT: ARIPIPRAZOLE
Active Ingredient: ARIPIPRAZOLE
Strength: 5MG
Dosage Form/Route: TABLET;ORAL
Application: A202683 | Product #002 | TE Code: AB
Applicant: ORBION PHARMACEUTICALS PRIVATE LTD
Approved: May 23, 2017 | RLD: No | RS: No | Type: RX